FAERS Safety Report 5521931-5 (Version None)
Quarter: 2007Q4

REPORT INFORMATION
  Report Type: 
  Country: None (occurrence: None)
  Receive Date: 20071120
  Receipt Date: 20061221
  Transmission Date: 20080405
  Serious: No
  Sender: FDA-Public Use
  Company Number: US-BRISTOL-MYERS SQUIBB COMPANY-13620703

PATIENT
  Sex: Female

DRUGS (1)
  1. AVALIDE [Suspect]

REACTIONS (1)
  - INTESTINAL FUNCTIONAL DISORDER [None]
